FAERS Safety Report 13228065 (Version 1)
Quarter: 2017Q1

REPORT INFORMATION
  Report Type: Spontaneous
  Country: US (occurrence: US)
  Receive Date: 20170213
  Receipt Date: 20170213
  Transmission Date: 20170428
  Serious: Yes (Hospitalization)
  Sender: FDA-Public Use
  Company Number: US-BAUSCH-BL-2017-003866

PATIENT
  Sex: Male

DRUGS (1)
  1. XIFAXAN [Suspect]
     Active Substance: RIFAXIMIN
     Indication: HEPATIC FAILURE
     Route: 065

REACTIONS (7)
  - Confusional state [Unknown]
  - Generalised oedema [Unknown]
  - Biliary sepsis [Unknown]
  - Drug dose omission [Unknown]
  - Liver disorder [Unknown]
  - Cholecystitis [Unknown]
  - Ascites [Unknown]
